FAERS Safety Report 6023566-7 (Version None)
Quarter: 2008Q4

REPORT INFORMATION
  Report Type: 
  Country: None (occurrence: None)
  Receive Date: 20081226
  Receipt Date: 20081226
  Transmission Date: 20090506
  Serious: Yes (Disabling)
  Sender: FDA-Public Use
  Company Number: None

PATIENT
  Age: 48 Year
  Sex: Female
  Weight: 78.0187 kg

DRUGS (1)
  1. LEVAQUIN [Suspect]

REACTIONS (2)
  - IMPAIRED WORK ABILITY [None]
  - TENDONITIS [None]
